FAERS Safety Report 19307811 (Version 1)
Quarter: 2021Q2

REPORT INFORMATION
  Report Type: Spontaneous
  Country: DE (occurrence: DE)
  Receive Date: 20210526
  Receipt Date: 20210526
  Transmission Date: 20210717
  Serious: Yes (Hospitalization)
  Sender: FDA-Public Use
  Company Number: DE-ASTRAZENECA-2021A454642

PATIENT
  Age: 52 Year
  Sex: Female

DRUGS (5)
  1. NOVALGIN [Concomitant]
     Route: 065
  2. METROPROLOL [Concomitant]
     Active Substance: METOPROLOL
     Dosage: DAILY DOSE: 47.5 MG MILLGRAM(S) EVERY DAYS
     Route: 065
  3. LYNPARZA [Suspect]
     Active Substance: OLAPARIB
     Route: 048
     Dates: start: 201710, end: 20200731
  4. FAKTOR [Concomitant]
     Route: 065
  5. L?THYROXIN [Concomitant]
     Active Substance: LEVOTHYROXINE SODIUM
     Dosage: DAILY DOSE: 100 ??G MICROGRAM(S) EVERY DAYS100UG/INHAL DAILY
     Route: 065

REACTIONS (2)
  - Myelodysplastic syndrome [Unknown]
  - Fatigue [Unknown]

NARRATIVE: CASE EVENT DATE: 20201214
